FAERS Safety Report 6733008-1 (Version None)
Quarter: 2010Q2

REPORT INFORMATION
  Report Type: 
  Country: None (occurrence: None)
  Receive Date: 20100514
  Receipt Date: 20100504
  Transmission Date: 20101027
  Serious: Yes (Hospitalization)
  Sender: FDA-Public Use
  Company Number: 1000013800

PATIENT
  Age: 63 Year
  Sex: Male

DRUGS (4)
  1. ESCITALOPRAM [Suspect]
     Indication: DEPRESSED MOOD
     Dosage: 10 MG (10 MG, 1 IN 1 D), ORAL
     Route: 048
     Dates: start: 20100120, end: 20100120
  2. BAKLOFEN [Concomitant]
  3. IBRUPROFEN [Concomitant]
  4. ALVEDON [Concomitant]

REACTIONS (1)
  - CEREBRAL INFARCTION [None]
